FAERS Safety Report 12760416 (Version 1)
Quarter: 2016Q3

REPORT INFORMATION
  Report Type: Spontaneous
  Country: US (occurrence: US)
  Receive Date: 20160919
  Receipt Date: 20160919
  Transmission Date: 20161109
  Serious: Yes (Other)
  Sender: FDA-Public Use
  Company Number: US-SA-2016SA169177

PATIENT
  Sex: Male

DRUGS (2)
  1. SOLOSTAR [Concomitant]
     Active Substance: DEVICE
     Dates: start: 2012
  2. LANTUS SOLOSTAR [Suspect]
     Active Substance: INSULIN GLARGINE
     Indication: TYPE 2 DIABETES MELLITUS
     Dosage: 42 U AND 30 U
     Route: 065
     Dates: start: 2012

REACTIONS (5)
  - Ankle fracture [Unknown]
  - Unevaluable event [Unknown]
  - Osteoporosis [Unknown]
  - Product use issue [Unknown]
  - Fall [Unknown]
